FAERS Safety Report 8052723-3 (Version None)
Quarter: 2012Q1

REPORT INFORMATION
  Report Type: 
  Country: None (occurrence: None)
  Receive Date: 20120111
  Receipt Date: 20101115
  Transmission Date: 20120608
  Serious: No
  Sender: FDA-Public Use
  Company Number: AECAN201000424

PATIENT
  Age: 48 Year
  Sex: Female

DRUGS (1)
  1. ALBUMINAR-25 [Suspect]
     Indication: PRODUCT USED FOR UNKNOWN INDICATION
     Dosage: 25 GM, 1X, IV
     Route: 042
     Dates: start: 20101020, end: 20101020

REACTIONS (1)
  - HYPERSENSITIVITY [None]
